FAERS Safety Report 4767308-1 (Version None)
Quarter: 2005Q3

REPORT INFORMATION
  Report Type: 
  Country: None (occurrence: None)
  Receive Date: 20050913
  Receipt Date: 20050826
  Transmission Date: 20060218
  Serious: Yes (Hospitalization)
  Sender: FDA-Public Use
  Company Number: JP-JPN-A20052019

PATIENT
  Age: 78 Year
  Sex: Female

DRUGS (6)
  1. PAXIL [Suspect]
     Indication: DEPRESSION
     Route: 048
     Dates: start: 20041216, end: 20050808
  2. ARTANE [Suspect]
     Route: 048
  3. TOLEDOMIN [Suspect]
     Route: 048
  4. LORAZEPAM [Concomitant]
     Route: 048
  5. SWERTIA [Concomitant]
     Route: 048
  6. ZOPICOOL [Concomitant]
     Route: 048

REACTIONS (1)
  - NEUROLEPTIC MALIGNANT SYNDROME [None]
